FAERS Safety Report 26116293 (Version 2)
Quarter: 2025Q4

REPORT INFORMATION
  Report Type: Spontaneous
  Country: US (occurrence: US)
  Receive Date: 20251203
  Receipt Date: 20251222
  Transmission Date: 20260117
  Serious: Yes (Hospitalization, Other)
  Sender: ABBVIE
  Company Number: US-ABBVIE-6570088

PATIENT
  Age: 82 Year
  Sex: Male

DRUGS (21)
  1. HUMIRA [Suspect]
     Active Substance: ADALIMUMAB
     Indication: Product used for unknown indication
     Route: 058
     Dates: start: 20110106
  2. FLOMAX [Concomitant]
     Active Substance: TAMSULOSIN HYDROCHLORIDE
     Indication: Benign prostatic hyperplasia
     Dosage: 0.4 MG STRENGTH MORNING
  3. LASIX [Concomitant]
     Active Substance: FUROSEMIDE
     Indication: Fluid retention
     Dates: start: 20240315
  4. KLOR-CON [Concomitant]
     Active Substance: POTASSIUM CHLORIDE
     Indication: Blood pressure increased
     Dates: start: 20221123
  5. VITAMIN D [Concomitant]
     Active Substance: VITAMIN D NOS
     Indication: Bone disorder
     Dates: start: 20180402
  6. ECOTRIN [Concomitant]
     Active Substance: ASPIRIN
     Indication: Cardiovascular disorder
     Dates: start: 20191115
  7. RANOLAZINE [Concomitant]
     Active Substance: RANOLAZINE
     Indication: Angina pectoris
     Dates: start: 20250611
  8. SKYRIZI [Concomitant]
     Active Substance: RISANKIZUMAB-RZAA
     Indication: Psoriasis
     Route: 058
     Dates: start: 20230119
  9. ZYLOPRIM [Concomitant]
     Active Substance: ALLOPURINOL
     Indication: Gout
     Dosage: BEDTIME
     Dates: start: 20191115
  10. DOXAZOSIN MESYLATE [Concomitant]
     Active Substance: DOXAZOSIN MESYLATE
     Indication: Blood pressure increased
     Dosage: BEDTIME
     Dates: start: 20231128
  11. COZAAR [Concomitant]
     Active Substance: LOSARTAN POTASSIUM
     Indication: Blood pressure increased
     Dosage: BEDTIME
     Dates: start: 20250922
  12. ROSUVASTATIN CALCIUM [Concomitant]
     Active Substance: ROSUVASTATIN CALCIUM
     Indication: Blood cholesterol increased
     Dosage: BEDTIME
     Dates: start: 20240926
  13. ZEPBOUND [Concomitant]
     Active Substance: TIRZEPATIDE
     Indication: Weight decreased
     Dosage: 2.5MG/0.5 ML
     Dates: start: 20250804
  14. PREVNAR 13 [Concomitant]
     Active Substance: STREPTOCOCCUS PNEUMONIAE TYPE 1 CAPSULAR POLYSACCHARIDE DIPHTHERIA CRM197 PROTEIN CONJUGATE ANTIGEN\
     Indication: Product used for unknown indication
     Dates: start: 20160113
  15. PNEUMOVAX 23 [Concomitant]
     Active Substance: PNEUMOCOCCAL VACCINE, POLYVALENT 23
     Indication: Product used for unknown indication
     Dates: start: 20191119
  16. Pfizer [Concomitant]
     Indication: Product used for unknown indication
  17. Moderna [Concomitant]
     Indication: Product used for unknown indication
     Dates: start: 20210111
  18. Moderna [Concomitant]
     Indication: Product used for unknown indication
     Dates: start: 20210208
  19. Moderna [Concomitant]
     Indication: Product used for unknown indication
     Dates: start: 20210927
  20. Moderna [Concomitant]
     Indication: Product used for unknown indication
     Dates: start: 20220428
  21. Moderna [Concomitant]
     Indication: Product used for unknown indication
     Dates: start: 20240122

REACTIONS (15)
  - Cardiac failure congestive [Unknown]
  - Colectomy [Unknown]
  - Appendicectomy [Unknown]
  - Stent placement [Unknown]
  - Abdominal hernia repair [Unknown]
  - Hernia [Unknown]
  - Exostosis [Unknown]
  - Sepsis [Unknown]
  - Catheterisation cardiac [Unknown]
  - Pericardial excision [Unknown]
  - Tooth fracture [Unknown]
  - Surgery [Unknown]
  - Sleep apnoea syndrome [Unknown]
  - Thyroid mass [Unknown]
  - Thyroid mass [Unknown]

NARRATIVE: CASE EVENT DATE: 20180410
